FAERS Safety Report 8799302 (Version 2)
Quarter: 2012Q4

REPORT INFORMATION
  Report Type: 
  Country: US (occurrence: US)
  Receive Date: 20120919
  Receipt Date: 20121008
  Transmission Date: 20130627
  Serious: Yes (Hospitalization)
  Sender: FDA-Public Use
  Company Number: US-ELI_LILLY_AND_COMPANY-US201209002309

PATIENT
  Age: 55 Year
  Sex: Female
  Weight: 74.83 kg

DRUGS (7)
  1. CYMBALTA [Suspect]
     Indication: ANXIETY
     Dosage: 60 mg, bid
     Route: 048
  2. VALIUM [Concomitant]
  3. COZAAR [Concomitant]
     Dosage: UNK, unknown
  4. NEXIUM [Concomitant]
     Dosage: UNK, unknown
  5. VESICARE [Concomitant]
     Dosage: UNK, unknown
  6. ZINC [Concomitant]
     Dosage: UNK, unknown
  7. TRAZODONE [Concomitant]
     Dosage: UNK, unknown

REACTIONS (9)
  - Lower limb fracture [Recovered/Resolved with Sequelae]
  - Fall [Recovered/Resolved with Sequelae]
  - Drug withdrawal syndrome [Recovered/Resolved with Sequelae]
  - Crying [Recovered/Resolved with Sequelae]
  - Hypersomnia [Recovered/Resolved with Sequelae]
  - Fatigue [Recovered/Resolved with Sequelae]
  - Irritability [Recovered/Resolved with Sequelae]
  - Emotional distress [Recovered/Resolved with Sequelae]
  - Mental impairment [Recovered/Resolved with Sequelae]
